FAERS Safety Report 9491368 (Version 2)
Quarter: 2013Q3

REPORT INFORMATION
  Report Type: Report from Study
  Country: SE (occurrence: SE)
  Receive Date: 20130830
  Receipt Date: 20130830
  Transmission Date: 20140515
  Serious: Yes (Hospitalization)
  Sender: FDA-Public Use
  Company Number: PHHO2010SE15817

PATIENT
  Age: 67 Year
  Sex: Male
  Weight: 91.8 kg

DRUGS (2)
  1. ALISKIREN [Suspect]
     Indication: CARDIOVASCULAR DISORDER
     Dosage: UNK
     Route: 048
     Dates: start: 20100512, end: 20101015
  2. ATACAND [Suspect]
     Indication: HYPERTENSION
     Dosage: 32 QD
     Route: 048
     Dates: start: 20050511, end: 20101015

REACTIONS (5)
  - Nephropathy [Recovered/Resolved]
  - Fluid retention [Recovered/Resolved]
  - Dyspnoea [Recovered/Resolved]
  - Oedema peripheral [Recovered/Resolved]
  - Condition aggravated [Recovered/Resolved]
